FAERS Safety Report 13262754 (Version 2)
Quarter: 2017Q2

REPORT INFORMATION
  Report Type: Report from Study
  Country: NL (occurrence: NL)
  Receive Date: 20170223
  Receipt Date: 20170413
  Transmission Date: 20170830
  Serious: Yes (Hospitalization, Other)
  Sender: FDA-Public Use
  Company Number: NL-AMGEN-NLDSL2017026406

PATIENT
  Age: 66 Year
  Sex: Male
  Weight: 57 kg

DRUGS (1)
  1. ARANESP [Suspect]
     Active Substance: DARBEPOETIN ALFA
     Indication: NEPHROGENIC ANAEMIA
     Dosage: 80 MUG (200 MCG/ML), Q4WK
     Route: 058

REACTIONS (1)
  - Pneumonia [Recovered/Resolved]
